FAERS Safety Report 11769321 (Version 1)
Quarter: 2015Q4

REPORT INFORMATION
  Report Type: Report from Study
  Country: NO (occurrence: NO)
  Receive Date: 20151123
  Receipt Date: 20151123
  Transmission Date: 20160304
  Serious: Yes (Other)
  Sender: FDA-Public Use
  Company Number: NO-ASTELLAS-2015US043734

PATIENT

DRUGS (5)
  1. CETUXIMAB [Suspect]
     Active Substance: CETUXIMAB
     Route: 042
  2. GEFITINIB [Suspect]
     Active Substance: GEFITINIB
     Indication: NEURALGIA
     Route: 048
  3. PANITUMUMAB [Suspect]
     Active Substance: PANITUMUMAB
     Indication: NEURALGIA
     Route: 042
  4. ERLOTINIB [Suspect]
     Active Substance: ERLOTINIB
     Indication: NEURALGIA
     Dosage: 100-150 MG, UNKNOWN FREQ.
     Route: 048
  5. CETUXIMAB [Suspect]
     Active Substance: CETUXIMAB
     Indication: NEURALGIA
     Dosage: 400 MG/M2, UNKNOWN FREQ., LOADING DOSE
     Route: 042

REACTIONS (11)
  - Hepatic enzyme increased [Unknown]
  - Skin disorder [Unknown]
  - Off label use [Unknown]
  - Meningitis aseptic [Unknown]
  - Hypertrichosis [Unknown]
  - Hypomagnesaemia [Unknown]
  - Infection [Unknown]
  - Alopecia [Unknown]
  - Diarrhoea [Unknown]
  - Stomatitis [Unknown]
  - Nausea [Unknown]
